FAERS Safety Report 5191223-5 (Version None)
Quarter: 2006Q4

REPORT INFORMATION
  Report Type: 
  Country: None (occurrence: None)
  Receive Date: 20061226
  Receipt Date: 20060316
  Transmission Date: 20070319
  Serious: Yes (Death)
  Sender: FDA-Public Use
  Company Number: US-AVENTIS-200612841US

PATIENT
  Age: 84 Year
  Sex: Female

DRUGS (9)
  1. LANTUS [Suspect]
     Indication: DIABETES MELLITUS NON-INSULIN-DEPENDENT
     Dates: start: 20060316
  2. INSULIN [Suspect]
     Dates: start: 20060316
  3. AVANDIA [Concomitant]
     Dosage: DOSE: UNK
  4. GLYBURIDE [Concomitant]
     Dosage: DOSE: UNK
  5. VERAPAMIL [Concomitant]
     Dosage: DOSE: UNKNOWN
  6. DIOVANE [Concomitant]
     Dosage: DOSE: UNKNOWN
  7. FUROSEMIDE [Concomitant]
     Dosage: DOSE: UNKNOWN
  8. SYNTHROID [Concomitant]
     Dosage: DOSE: UNKNOWN
  9. PREDNISONE TAB [Concomitant]
     Dosage: DOSE: UNKNOWN

REACTIONS (4)
  - DEATH [None]
  - INCORRECT DOSE ADMINISTERED [None]
  - INJECTION SITE HAEMORRHAGE [None]
  - WRONG TECHNIQUE IN DRUG USAGE PROCESS [None]
